FAERS Safety Report 10157318 (Version 1)
Quarter: 2014Q2

REPORT INFORMATION
  Report Type: Spontaneous
  Country: US (occurrence: US)
  Receive Date: 20140507
  Receipt Date: 20140507
  Transmission Date: 20141212
  Serious: No
  Sender: FDA-Public Use
  Company Number: US-PFIZER INC-2014121957

PATIENT
  Age: 61 Year
  Sex: Male

DRUGS (6)
  1. NEURONTIN [Suspect]
     Dosage: UNK
  2. ZOCOR [Suspect]
     Dosage: UNK
  3. SYMBICORT [Suspect]
     Dosage: UNK
  4. AMBIEN [Suspect]
     Dosage: UNK
  5. SOMA [Suspect]
     Dosage: UNK
  6. CYCLOBENZAPRINE [Suspect]
     Dosage: UNK

REACTIONS (1)
  - Drug hypersensitivity [Unknown]
